FAERS Safety Report 4636145-0 (Version None)
Quarter: 2005Q2

REPORT INFORMATION
  Report Type: 
  Country: None (occurrence: None)
  Receive Date: 20050414
  Receipt Date: 20050414
  Transmission Date: 20051028
  Serious: Yes (Hospitalization, Other)
  Sender: FDA-Public Use
  Company Number: None

PATIENT
  Sex: Male
  Weight: 78 kg

DRUGS (1)
  1. DROTRECOGIN [Suspect]
     Indication: SEPSIS
     Dosage: 24 MG/KG/HR

REACTIONS (4)
  - FAECAL OCCULT BLOOD POSITIVE [None]
  - HAEMATOCRIT DECREASED [None]
  - MEAN ARTERIAL PRESSURE DECREASED [None]
  - MELAENA [None]
